FAERS Safety Report 7706645-5 (Version None)
Quarter: 2011Q3

REPORT INFORMATION
  Report Type: 
  Country: None (occurrence: None)
  Receive Date: 20110824
  Receipt Date: 20110816
  Transmission Date: 20111222
  Serious: Yes (Hospitalization)
  Sender: FDA-Public Use
  Company Number: CA-JNJFOC-20110808149

PATIENT
  Sex: Male
  Weight: 87 kg

DRUGS (4)
  1. REMICADE [Suspect]
     Indication: CROHN'S DISEASE
     Route: 042
     Dates: start: 20091201
  2. METHOTREXATE [Concomitant]
     Route: 065
  3. BUTRANS [Concomitant]
     Route: 065
  4. EMTEC 30 [Concomitant]
     Route: 065

REACTIONS (2)
  - RENAL COLIC [None]
  - MUSCULOSKELETAL PAIN [None]
